FAERS Safety Report 8030670-0 (Version None)
Quarter: 2012Q1

REPORT INFORMATION
  Report Type: 
  Country: None (occurrence: None)
  Receive Date: 20120109
  Receipt Date: 20120103
  Transmission Date: 20120608
  Serious: Yes (Hospitalization, Other)
  Sender: FDA-Public Use
  Company Number: PHHY2012FR001210

PATIENT
  Sex: Female

DRUGS (5)
  1. ASPIRIN [Concomitant]
     Indication: THROMBOSIS PROPHYLAXIS
     Dosage: 160 MG, QD
  2. LASIX [Concomitant]
     Indication: HYPERTENSION
     Dosage: 40 MG, QD
  3. ATORVASTATIN CALCIUM [Concomitant]
     Dosage: 20 MG, QD
     Dates: start: 20080101
  4. VALSARTAN  AND HYDROCHLOROTHIAZIDE [Suspect]
     Indication: HYPERTENSION
     Dosage: 1 DF, QD (160 MG VALS AND 25 MG HYDRO)
     Route: 048
     Dates: start: 20110721, end: 20111029
  5. BISOPROLOL FUMARATE [Concomitant]
     Indication: HYPERTENSION
     Dosage: 5 MG, QD
     Dates: start: 20070101

REACTIONS (7)
  - BLOOD POTASSIUM DECREASED [None]
  - VOMITING [None]
  - ORTHOSTATIC HYPOTENSION [None]
  - MALAISE [None]
  - MUSCULAR WEAKNESS [None]
  - TACHYCARDIA [None]
  - FALL [None]
